FAERS Safety Report 23205418 (Version 1)
Quarter: 2023Q4

REPORT INFORMATION
  Report Type: Spontaneous
  Country: JP (occurrence: JP)
  Receive Date: 20231120
  Receipt Date: 20231120
  Transmission Date: 20240110
  Serious: No
  Sender: FDA-Public Use
  Company Number: JP-WW-2023-08298-LUN

PATIENT
  Age: 5 Decade
  Sex: Female

DRUGS (2)
  1. LUNESTA [Suspect]
     Active Substance: ESZOPICLONE
     Route: 048
  2. Psychotropic drug [Concomitant]
     Route: 065

REACTIONS (1)
  - Enuresis [Recovered/Resolved]
